FAERS Safety Report 9859520 (Version 1)
Quarter: 2014Q1

REPORT INFORMATION
  Report Type: Spontaneous
  Country: US (occurrence: US)
  Receive Date: 20140131
  Receipt Date: 20140131
  Transmission Date: 20141002
  Serious: No
  Sender: FDA-Public Use
  Company Number: US-009507513-1401USA014585

PATIENT
  Sex: Male

DRUGS (11)
  1. JANUVIA [Suspect]
     Indication: TYPE 2 DIABETES MELLITUS
     Dosage: 100 MG, QD
     Route: 048
     Dates: start: 20140128
  2. JANUVIA [Suspect]
     Dosage: UNK
     Route: 048
     Dates: start: 20130913, end: 20140127
  3. METFORMIN [Concomitant]
     Dosage: 200 MG, QD
  4. BENAZEPRIL HYDROCHLORIDE [Concomitant]
     Dosage: 5 MG, UNK
  5. GABAPENTIN [Concomitant]
     Dosage: 300 MG, UNK
  6. GLIMEPIRIDE [Concomitant]
     Dosage: 4 MG, UNK
  7. LATANOPROST [Concomitant]
  8. LOTEMAX [Concomitant]
  9. OMEPRAZOLE [Concomitant]
     Dosage: 40 MG, QD
     Route: 048
  10. SIMVASTATIN TABLETS, USP [Concomitant]
     Dosage: 40 MG, QD
     Route: 048
  11. SYSTANE [Concomitant]

REACTIONS (5)
  - Blood creatinine abnormal [Recovering/Resolving]
  - Overdose [Unknown]
  - Aspartate aminotransferase increased [Unknown]
  - Alanine aminotransferase increased [Unknown]
  - Glycosylated haemoglobin increased [Unknown]
